FAERS Safety Report 11983451 (Version 1)
Quarter: 2016Q1

REPORT INFORMATION
  Report Type: Report from Study
  Country: US (occurrence: US)
  Receive Date: 20160201
  Receipt Date: 20160201
  Transmission Date: 20160526
  Serious: Yes (Hospitalization, Other)
  Sender: FDA-Public Use
  Company Number: US-ABBVIE-16K-163-1546643-00

PATIENT
  Sex: Female

DRUGS (1)
  1. HUMIRA [Suspect]
     Active Substance: ADALIMUMAB
     Indication: RHEUMATOID ARTHRITIS
     Route: 058
     Dates: start: 20150727, end: 201510

REACTIONS (4)
  - Renal failure [Not Recovered/Not Resolved]
  - Vomiting [Unknown]
  - Spinal column stenosis [Recovering/Resolving]
  - Postoperative wound infection [Unknown]
